FAERS Safety Report 8105335-7 (Version None)
Quarter: 2012Q1

REPORT INFORMATION
  Report Type: 
  Country: None (occurrence: None)
  Receive Date: 20120201
  Receipt Date: 20120127
  Transmission Date: 20120608
  Serious: Yes (Hospitalization, Other)
  Sender: FDA-Public Use
  Company Number: US-PFIZER INC-2012023452

PATIENT
  Sex: Female
  Weight: 108 kg

DRUGS (9)
  1. QUINAPRIL HCL AND HYDROCHLOROTHIAZIDE [Concomitant]
     Indication: HYPERTENSION
     Dosage: 20/12.5 MG, DAILY
  2. LYRICA [Suspect]
     Dosage: UNK
     Dates: start: 20120101, end: 20120112
  3. ACETAMINOPHEN [Concomitant]
     Indication: ARTHRITIS
     Dosage: UNK
  4. LYRICA [Suspect]
     Indication: HERPES ZOSTER
     Dosage: 150 MG, DAILY
     Dates: start: 20120101
  5. LYRICA [Suspect]
     Indication: FALL
     Dosage: 75 MG, DAILY
     Dates: start: 20120101
  6. CLARITIN-D [Concomitant]
     Indication: SINUS DISORDER
     Dosage: 10/200 MG
  7. SINGULAIR [Concomitant]
     Indication: SINUS DISORDER
     Dosage: 10 MG, DAILY
  8. LYRICA [Suspect]
     Dosage: 225 MG, DAILY
     Dates: start: 20120101
  9. TYLENOL W/ CODEINE [Concomitant]
     Indication: ARTHRITIS
     Dosage: UNK

REACTIONS (3)
  - BLOOD GLUCOSE INCREASED [None]
  - POLLAKIURIA [None]
  - EYE DISORDER [None]
